FAERS Safety Report 8377996-9 (Version None)
Quarter: 2012Q2

REPORT INFORMATION
  Report Type: 
  Country: None (occurrence: None)
  Receive Date: 20120521
  Receipt Date: 20120511
  Transmission Date: 20120825
  Serious: Yes (Other)
  Sender: FDA-Public Use
  Company Number: 1289238

PATIENT
  Age: 73 Year
  Sex: Female

DRUGS (2)
  1. AMIODARONE HCL [Suspect]
     Indication: SUPRAVENTRICULAR TACHYARRHYTHMIA
  2. LEVOTHYROXINE SODIUM [Concomitant]

REACTIONS (1)
  - NEUROMYOPATHY [None]
